FAERS Safety Report 7786723-5 (Version None)
Quarter: 2011Q3

REPORT INFORMATION
  Report Type: 
  Country: None (occurrence: None)
  Receive Date: 20110929
  Receipt Date: 20110926
  Transmission Date: 20111222
  Serious: Yes (Other)
  Sender: FDA-Public Use
  Company Number: US-PFIZER INC-2011229205

PATIENT
  Sex: Female
  Weight: 56 kg

DRUGS (3)
  1. DILANTIN [Suspect]
     Indication: CONVULSION
     Dosage: 200 MG, UNK
     Route: 048
  2. DILANTIN [Suspect]
     Dosage: 230 MG, 1X/DAY
     Route: 048
     Dates: end: 20110901
  3. DILANTIN [Suspect]
     Dosage: 300 MG, UNK
     Route: 048
     Dates: start: 20110901

REACTIONS (6)
  - SOMNOLENCE [None]
  - HYPERSOMNIA [None]
  - FEELING ABNORMAL [None]
  - LOSS OF CONSCIOUSNESS [None]
  - DRUG LEVEL DECREASED [None]
  - SEDATION [None]
